FAERS Safety Report 20744820 (Version 1)
Quarter: 2022Q2

REPORT INFORMATION
  Report Type: Spontaneous
  Country: CN (occurrence: CN)
  Receive Date: 20220425
  Receipt Date: 20220425
  Transmission Date: 20220721
  Serious: Yes (Hospitalization, Other)
  Sender: FDA-Public Use
  Company Number: CN-PFIZER INC-202200581731

PATIENT
  Age: 76 Year
  Sex: Male
  Weight: 67 kg

DRUGS (2)
  1. DOXAZOSIN MESYLATE [Suspect]
     Active Substance: DOXAZOSIN MESYLATE
     Indication: Hypertension
     Dosage: 4 MG, 1X/DAY (AT NIGHT)
     Route: 048
     Dates: start: 20220317, end: 20220318
  2. DOXAZOSIN MESYLATE [Suspect]
     Active Substance: DOXAZOSIN MESYLATE
     Indication: Blood pressure inadequately controlled

REACTIONS (3)
  - Syncope [Recovering/Resolving]
  - Sedation [Recovering/Resolving]
  - Memory impairment [Recovering/Resolving]

NARRATIVE: CASE EVENT DATE: 20220318
